FAERS Safety Report 21005035 (Version 1)
Quarter: 2022Q3

REPORT INFORMATION
  Report Type: Spontaneous
  Country: FR (occurrence: FR)
  Receive Date: 20220624
  Receipt Date: 20220624
  Transmission Date: 20221027
  Serious: Yes (Other)
  Sender: FDA-Public Use
  Company Number: FR-NOVARTISPH-NVSC2022FR144321

PATIENT
  Sex: Male

DRUGS (9)
  1. ACETAMINOPHEN [Suspect]
     Active Substance: ACETAMINOPHEN
     Indication: Product used for unknown indication
     Dosage: 500 MILLIGRAM (CAPSULE)
     Route: 065
     Dates: start: 20160616
  2. PREDNISOLONE [Suspect]
     Active Substance: PREDNISOLONE
     Indication: Product used for unknown indication
     Dosage: 4 DOSAGE FORM, QW (4 DOSAGE FORM, 1/WEEK, FOR 1 WEEK, FOR 1 WEEK)
     Route: 065
     Dates: start: 20160617
  3. SACCHAROMYCES CEREVISIAE [Suspect]
     Active Substance: SACCHAROMYCES CEREVISIAE
     Indication: Product used for unknown indication
     Dosage: FOR 7 HOURS
     Route: 065
     Dates: start: 20160622
  4. TRAMADOL HYDROCHLORIDE [Suspect]
     Active Substance: TRAMADOL HYDROCHLORIDE
     Indication: Product used for unknown indication
     Dosage: 50 MG, QD (50 MILLIGRAM, 1/DAY)
     Route: 065
     Dates: start: 20160616
  5. ACETAMINOPHEN\CODEINE PHOSPHATE [Suspect]
     Active Substance: ACETAMINOPHEN\CODEINE PHOSPHATE
     Indication: Product used for unknown indication
     Dosage: 300 MG/ 25 MG, FOR 15 DAYS
     Route: 065
     Dates: start: 20160622
  6. AMOXICILLIN\CLAVULANATE POTASSIUM [Suspect]
     Active Substance: AMOXICILLIN\CLAVULANATE POTASSIUM
     Indication: Product used for unknown indication
     Dosage: 3 DOSAGE FORM, QD (1 DOSAGE FORM, 3/DAY (1 G/125MG, ORAL SUSPENSION SACHET ON THE MORNING, ONE ON TH
     Route: 048
     Dates: start: 20160622
  7. AMOXICILLIN\CLAVULANATE POTASSIUM [Suspect]
     Active Substance: AMOXICILLIN\CLAVULANATE POTASSIUM
     Dosage: UNK
     Route: 065
  8. DOLIPRANE [Suspect]
     Active Substance: ACETAMINOPHEN
     Indication: Product used for unknown indication
     Dosage: 4000 MG, QD (1000 MILLIGRAM, 4/DAY)
     Route: 065
     Dates: start: 20160622
  9. AMOXICILLIN\CLAVULANIC ACID [Suspect]
     Active Substance: AMOXICILLIN\CLAVULANIC ACID
     Indication: Product used for unknown indication
     Dosage: 3 DOSAGE FORM, QD (1 DOSAGE FORM, 3/DAY)
     Route: 065
     Dates: start: 20160616

REACTIONS (3)
  - White matter lesion [Unknown]
  - Depression [Unknown]
  - Amyotrophy [Unknown]
